FAERS Safety Report 23196511 (Version 1)
Quarter: 2023Q4

REPORT INFORMATION
  Report Type: Spontaneous
  Country: MX (occurrence: MX)
  Receive Date: 20231117
  Receipt Date: 20231117
  Transmission Date: 20240110
  Serious: Yes (Other)
  Sender: FDA-Public Use
  Company Number: MX-GALDERMA-MX2023016802

PATIENT

DRUGS (1)
  1. IVERMECTIN [Suspect]
     Active Substance: IVERMECTIN
     Indication: Demodicidosis
     Dosage: 1 DOSAGE FORM
     Route: 061
     Dates: start: 202310

REACTIONS (4)
  - Myiasis [Unknown]
  - Skin wound [Unknown]
  - Skin haemorrhage [Unknown]
  - Intentional product use issue [Recovered/Resolved]

NARRATIVE: CASE EVENT DATE: 20230101
